FAERS Safety Report 8190982-7 (Version None)
Quarter: 2012Q1

REPORT INFORMATION
  Report Type: 
  Country: None (occurrence: None)
  Receive Date: 20120221
  Receipt Date: 20111116
  Transmission Date: 20120608
  Serious: No
  Sender: FDA-Public Use
  Company Number: 1000025572

PATIENT
  Age: 39 Year
  Sex: Male

DRUGS (9)
  1. TESTOSTERONE (TESOSTERONE) (TESTOSTERONE) [Concomitant]
  2. COREG (CARVEDILOL) (CARVEDILOL) [Concomitant]
  3. VIIBRYD [Suspect]
     Indication: DEPRESSION
     Dosage: 10 MG (10 MG, 1 IN 1 D), ORAL; 20 MG (20 MG, 1 IN 1D), ORAL; 40 MG (40 MG,1 IN1 D),ORAL
     Route: 048
     Dates: start: 20110901
  4. VIIBRYD [Suspect]
     Indication: DEPRESSION
     Dosage: 10 MG (10 MG, 1 IN 1 D), ORAL; 20 MG (20 MG, 1 IN 1D), ORAL; 40 MG (40 MG,1 IN1 D),ORAL
     Route: 048
     Dates: start: 20110801, end: 20110901
  5. VIIBRYD [Suspect]
     Indication: DEPRESSION
     Dosage: 10 MG (10 MG, 1 IN 1 D), ORAL; 20 MG (20 MG, 1 IN 1D), ORAL; 40 MG (40 MG,1 IN1 D),ORAL
     Route: 048
     Dates: start: 20110601, end: 20110801
  6. LEVOTHROXINE (LEVOTHROXINE SODIUM) (LEVOTHROXINE SODIUM) [Concomitant]
  7. NASACORT (TRIAMCINOLONE ACETONIDE) (TRIAMCINOLONE ACETONIDE) [Concomitant]
  8. LASIX [Concomitant]
  9. DIGOXIN [Concomitant]

REACTIONS (1)
  - BLEEDING TIME PROLONGED [None]
